FAERS Safety Report 14575810 (Version 2)
Quarter: 2018Q1

REPORT INFORMATION
  Report Type: Report from Study
  Country: US (occurrence: US)
  Receive Date: 20180227
  Receipt Date: 20180313
  Transmission Date: 20180509
  Serious: Yes (Hospitalization)
  Sender: FDA-Public Use
  Company Number: US-ROCHE-2073605

PATIENT
  Age: 50 Year
  Sex: Female
  Weight: 73.6 kg

DRUGS (20)
  1. ATEZOLIZUMAB. [Suspect]
     Active Substance: ATEZOLIZUMAB
     Indication: MALIGNANT MELANOMA
     Dosage: DATE OF MOST RECENT DOSE PRIOR TO AE ONSET ON 31/JAN/2018?DATE OF MOST RECENT DOSE PRIOR TO SAE ON 0
     Route: 042
     Dates: start: 20171221
  2. POTASSIUM CHLORIDE SLOW RELEASE [Concomitant]
     Indication: HYPOKALAEMIA
     Dosage: 20 OTHER
     Route: 048
     Dates: start: 20180108
  3. DIPHENHYDRAMINE. [Concomitant]
     Active Substance: DIPHENHYDRAMINE
     Indication: PRURITUS
     Route: 042
     Dates: start: 20180209, end: 20180210
  4. ALPRAZOLAM. [Concomitant]
     Active Substance: ALPRAZOLAM
     Indication: ANXIETY
     Route: 048
     Dates: start: 2016
  5. ATORVASTATIN [Concomitant]
     Active Substance: ATORVASTATIN
     Indication: BLOOD CHOLESTEROL INCREASED
     Route: 048
     Dates: start: 201607
  6. ZOFRAN [Concomitant]
     Active Substance: ONDANSETRON HYDROCHLORIDE
     Indication: NAUSEA
     Route: 048
     Dates: start: 201603
  7. BENZOCAINE. [Concomitant]
     Active Substance: BENZOCAINE
     Indication: PAIN
     Route: 061
     Dates: start: 20180210, end: 20180211
  8. ZOFRAN [Concomitant]
     Active Substance: ONDANSETRON HYDROCHLORIDE
     Indication: NAUSEA
     Route: 042
     Dates: start: 20180210, end: 20180210
  9. PROMETHAZINE [Concomitant]
     Active Substance: PROMETHAZINE\PROMETHAZINE HYDROCHLORIDE
     Indication: NAUSEA
     Route: 048
     Dates: start: 20170905
  10. DOXYCYCLINE. [Concomitant]
     Active Substance: DOXYCYCLINE
     Indication: RASH
     Route: 048
     Dates: start: 20180111
  11. IBUPROFEN. [Concomitant]
     Active Substance: IBUPROFEN
     Indication: PYREXIA
     Route: 048
     Dates: start: 20180203, end: 20180204
  12. IMODIUM [Concomitant]
     Active Substance: LOPERAMIDE HYDROCHLORIDE
     Indication: DIARRHOEA
     Route: 048
     Dates: start: 20171223
  13. ACETAMINOPHEN/HYDROCODONE [Concomitant]
     Active Substance: ACETAMINOPHEN\HYDROCODONE
     Route: 048
     Dates: start: 20170222
  14. TRIAMCINOLONE [Concomitant]
     Active Substance: TRIAMCINOLONE
     Indication: RASH
     Route: 061
     Dates: start: 20170111
  15. COBIMETINIB. [Suspect]
     Active Substance: COBIMETINIB
     Indication: MALIGNANT MELANOMA
     Dosage: DATE OF MOST RECENT DOSE 60 MG WAS ON 07/FEB/2018.?(ON DAYS 1-21 OF EACH 28-DAY CYCLE)
     Route: 048
     Dates: start: 20171221
  16. BYSTOLIC [Concomitant]
     Active Substance: NEBIVOLOL HYDROCHLORIDE
     Indication: HYPERTENSION
     Route: 048
     Dates: start: 2015
  17. BENADRYL [Concomitant]
     Active Substance: DIPHENHYDRAMINE HYDROCHLORIDE
     Indication: ANXIETY
     Route: 048
     Dates: start: 2015
  18. TRAZODONE [Concomitant]
     Active Substance: TRAZODONE HYDROCHLORIDE
     Indication: ANXIETY
     Route: 048
     Dates: start: 20171031
  19. METHYLPREDNISOLONE. [Concomitant]
     Active Substance: METHYLPREDNISOLONE
     Indication: RASH
     Route: 048
     Dates: start: 20180108
  20. DIPHENHYDRAMINE. [Concomitant]
     Active Substance: DIPHENHYDRAMINE
     Indication: RASH
     Route: 042
     Dates: start: 20180210, end: 20180212

REACTIONS (1)
  - Small intestinal obstruction [Recovered/Resolved]

NARRATIVE: CASE EVENT DATE: 20180208
